FAERS Safety Report 12642203 (Version 1)
Quarter: 2016Q3

REPORT INFORMATION
  Report Type: Spontaneous
  Country: US (occurrence: US)
  Receive Date: 20160810
  Receipt Date: 20160810
  Transmission Date: 20161109
  Serious: Yes (Hospitalization, Other)
  Sender: FDA-Public Use
  Company Number: US-PFIZER INC-2016376053

PATIENT
  Sex: Female

DRUGS (1)
  1. ADVIL [Suspect]
     Active Substance: IBUPROFEN
     Indication: ARTHRALGIA
     Dosage: 400 MG, 2X/DAY (200 MG TABLETS, 2 TABLETS)

REACTIONS (3)
  - Gastric cancer stage I [Unknown]
  - Incorrect drug administration duration [Unknown]
  - Gastric ulcer haemorrhage [Unknown]
